FAERS Safety Report 24203193 (Version 1)
Quarter: 2024Q3

REPORT INFORMATION
  Report Type: Spontaneous
  Country: US (occurrence: US)
  Receive Date: 20240813
  Receipt Date: 20240813
  Transmission Date: 20241017
  Serious: No
  Sender: Tarsus Pharmaceuticals
  Company Number: US-TARSUS PHARMACEUTICALS-TSP-US-2024-000238

PATIENT
  Age: 70 Year
  Sex: Male

DRUGS (1)
  1. XDEMVY [Suspect]
     Active Substance: LOTILANER
     Indication: Blepharitis
     Dosage: 1 DROP, BID (IN BOTH EYES FOR SIX WEEKS)
     Route: 047
     Dates: start: 20240520

REACTIONS (2)
  - Eye irritation [Unknown]
  - Eye paraesthesia [Unknown]

NARRATIVE: CASE EVENT DATE: 20240101
